FAERS Safety Report 7516657-2 (Version None)
Quarter: 2011Q2

REPORT INFORMATION
  Report Type: 
  Country: None (occurrence: None)
  Receive Date: 20110601
  Receipt Date: 20110524
  Transmission Date: 20111010
  Serious: Yes (Death, Other)
  Sender: FDA-Public Use
  Company Number: CA-ROCHE-774095

PATIENT
  Sex: Female
  Weight: 62.6 kg

DRUGS (4)
  1. CARBAMAZEPINE [Concomitant]
  2. BEVACIZUMAB [Suspect]
     Indication: GLIOBLASTOMA MULTIFORME
     Route: 042
     Dates: start: 20110224, end: 20110501
  3. RANITIDINE [Concomitant]
  4. DECADRON [Concomitant]

REACTIONS (2)
  - DEATH [None]
  - HEMIPLEGIA [None]
